FAERS Safety Report 15821544 (Version 1)
Quarter: 2019Q1

REPORT INFORMATION
  Report Type: Spontaneous
  Country: US (occurrence: US)
  Receive Date: 20190114
  Receipt Date: 20190114
  Transmission Date: 20190417
  Serious: No
  Sender: FDA-Public Use
  Company Number: US-PFIZER INC-2019013794

PATIENT
  Age: 65 Year
  Sex: Male
  Weight: 113.38 kg

DRUGS (1)
  1. LYRICA [Suspect]
     Active Substance: PREGABALIN
     Indication: DIABETIC NEUROPATHY
     Dosage: 450 MG, DAILY (150MG BY MOUTH, TAKES 1 IN THE MORNING AND 2 IN THE EVENING)
     Route: 048
     Dates: end: 20190105

REACTIONS (1)
  - Pain [Not Recovered/Not Resolved]

NARRATIVE: CASE EVENT DATE: 20190106
